FAERS Safety Report 17812776 (Version 1)
Quarter: 2020Q2

REPORT INFORMATION
  Report Type: Spontaneous
  Country: GB (occurrence: GB)
  Receive Date: 20200521
  Receipt Date: 20200521
  Transmission Date: 20200714
  Serious: Yes (Other)
  Sender: FDA-Public Use
  Company Number: GB-MYLANLABS-2020M1049375

PATIENT
  Age: 27 Year
  Sex: Male
  Weight: 83 kg

DRUGS (1)
  1. MIRTAZAPINE. [Suspect]
     Active Substance: MIRTAZAPINE
     Indication: DEPRESSION
     Dosage: 15 MILLIGRAM
     Route: 048
     Dates: start: 20200423, end: 20200425

REACTIONS (2)
  - Psychotic disorder [Recovered/Resolved with Sequelae]
  - Nightmare [Recovered/Resolved with Sequelae]

NARRATIVE: CASE EVENT DATE: 20200425
